FAERS Safety Report 6717305-1 (Version None)
Quarter: 2010Q2

REPORT INFORMATION
  Report Type: 
  Country: None (occurrence: None)
  Receive Date: 20100510
  Receipt Date: 20100503
  Transmission Date: 20101027
  Serious: Yes (Other)
  Sender: FDA-Public Use
  Company Number: US-SANOFI-AVENTIS-2010SA017678

PATIENT
  Age: 62 Year
  Sex: Male
  Weight: 92.1 kg

DRUGS (10)
  1. MULTAQ [Suspect]
     Indication: ATRIAL FIBRILLATION
     Route: 048
     Dates: start: 20100212, end: 20100324
  2. MULTAQ [Suspect]
     Route: 048
     Dates: start: 20100212, end: 20100324
  3. TIKOSYN [Concomitant]
  4. METFORMIN HYDROCHLORIDE [Concomitant]
     Dates: start: 20060101
  5. GLYBURIDE [Concomitant]
     Dates: start: 20060101
  6. LASIX [Concomitant]
     Dates: start: 20100201
  7. SIMVASTATIN [Concomitant]
  8. COUMADIN [Concomitant]
     Dates: start: 20091029
  9. ATENOLOL [Concomitant]
  10. ALL OTHER THERAPEUTIC PRODUCTS [Concomitant]

REACTIONS (5)
  - ATRIAL FIBRILLATION [None]
  - CHEST PAIN [None]
  - DEPRESSED MOOD [None]
  - OFF LABEL USE [None]
  - SUICIDAL IDEATION [None]
